FAERS Safety Report 6857983-X (Version None)
Quarter: 2010Q3

REPORT INFORMATION
  Report Type: 
  Country: None (occurrence: None)
  Receive Date: 20100714
  Receipt Date: 20100629
  Transmission Date: 20110219
  Serious: Yes (Disabling, Other)
  Sender: FDA-Public Use
  Company Number: AUR-APL-2010-01539

PATIENT
  Age: 49 Year
  Sex: Female
  Weight: 87 kg

DRUGS (3)
  1. METFORMIN HCL [Suspect]
     Indication: DIABETES MELLITUS
     Dosage: 1500MG, QD, ORAL
     Route: 048
     Dates: start: 20090828
  2. SIMVASTATIN [Suspect]
     Indication: HYPERLIPIDAEMIA
     Dosage: ORAL
     Route: 048
     Dates: start: 20091126
  3. CYCLOPROGYNOVA [Concomitant]

REACTIONS (1)
  - PEMPHIGUS [None]
